FAERS Safety Report 7217260-4 (Version None)
Quarter: 2010Q4

REPORT INFORMATION
  Report Type: 
  Country: None (occurrence: None)
  Receive Date: 20101227
  Receipt Date: 20101215
  Transmission Date: 20110411
  Serious: Yes (Hospitalization, Other)
  Sender: FDA-Public Use
  Company Number: WAES 1012USA02839

PATIENT
  Age: 75 Year
  Sex: Female
  Weight: 54.8852 kg

DRUGS (7)
  1. ZOCOR [Suspect]
     Indication: ACUTE CORONARY SYNDROME
     Dosage: PO
     Route: 048
     Dates: start: 20060914
  2. PLACEBO (UNSPECIFIED) UNK [Suspect]
     Indication: ACUTE CORONARY SYNDROME
     Dosage: PO
     Route: 048
     Dates: start: 20060914
  3. TAB PLACEBO (UNSPECIFIED) UNK [Suspect]
     Indication: ACUTE CORONARY SYNDROME
     Dosage: PO
     Route: 048
     Dates: start: 20060914
  4. ADALAT CC [Concomitant]
  5. NEXIUM [Concomitant]
  6. RIVASA [Concomitant]
  7. TENORMIN [Concomitant]

REACTIONS (4)
  - ADENOMA BENIGN [None]
  - ATRIAL FLUTTER [None]
  - CHOLECYSTITIS ACUTE [None]
  - HYPOKALAEMIA [None]
